FAERS Safety Report 9103062 (Version 1)
Quarter: 2013Q1

REPORT INFORMATION
  Report Type: Spontaneous
  Country: JP (occurrence: JP)
  Receive Date: 20130219
  Receipt Date: 20130219
  Transmission Date: 20140127
  Serious: Yes (Other)
  Sender: FDA-Public Use
  Company Number: JP-ELI_LILLY_AND_COMPANY-JP201302003863

PATIENT
  Sex: Female

DRUGS (1)
  1. FORTEO [Suspect]
     Dosage: UNK
     Route: 058
     Dates: start: 20130206, end: 20130207

REACTIONS (5)
  - Cardiac failure [Unknown]
  - Dizziness [Unknown]
  - Abdominal discomfort [Unknown]
  - Intentional drug misuse [Unknown]
  - Nausea [Unknown]
